FAERS Safety Report 7827859-X (Version None)
Quarter: 2011Q4

REPORT INFORMATION
  Report Type: 
  Country: None (occurrence: None)
  Receive Date: 20111019
  Receipt Date: 20111019
  Transmission Date: 20120403
  Serious: No
  Sender: FDA-Public Use
  Company Number: None

PATIENT
  Sex: Female
  Weight: 95.709 kg

DRUGS (1)
  1. SYNTHROID [Suspect]
     Indication: HYPOTHYROIDISM
     Dosage: QD PO
     Route: 048

REACTIONS (6)
  - RESTLESSNESS [None]
  - MOOD SWINGS [None]
  - FATIGUE [None]
  - DRUG INEFFECTIVE [None]
  - ALOPECIA [None]
  - DISTURBANCE IN ATTENTION [None]
